FAERS Safety Report 7055541-8 (Version None)
Quarter: 2010Q4

REPORT INFORMATION
  Report Type: 
  Country: None (occurrence: None)
  Receive Date: 20101021
  Receipt Date: 20101011
  Transmission Date: 20110411
  Serious: Yes (Death, Other)
  Sender: FDA-Public Use
  Company Number: DE-CELGENEUS-062-50794-10101454

PATIENT
  Age: 36 Year
  Sex: Male

DRUGS (1)
  1. VIDAZA [Suspect]
     Indication: PRODUCT USED FOR UNKNOWN INDICATION
     Route: 050

REACTIONS (7)
  - ACUTE GRAFT VERSUS HOST DISEASE IN LIVER [None]
  - ACUTE GRAFT VERSUS HOST DISEASE IN SKIN [None]
  - CEREBRAL TOXOPLASMOSIS [None]
  - HAEMORRHAGE INTRACRANIAL [None]
  - PNEUMONIA [None]
  - PYREXIA [None]
  - SEPSIS [None]
